FAERS Safety Report 9919651 (Version 1)
Quarter: 2014Q1

REPORT INFORMATION
  Report Type: Spontaneous
  Country: IN (occurrence: IN)
  Receive Date: 20140224
  Receipt Date: 20140224
  Transmission Date: 20141002
  Serious: Yes (Hospitalization)
  Sender: FDA-Public Use
  Company Number: PHHY2014IN019914

PATIENT
  Age: 49 Year
  Sex: Male

DRUGS (3)
  1. CICLOSPORIN [Suspect]
     Indication: CROHN^S DISEASE
  2. PREDNISOLONE [Suspect]
     Indication: CROHN^S DISEASE
  3. INFLIXIMAB [Suspect]
     Indication: CROHN^S DISEASE

REACTIONS (6)
  - Intestinal obstruction [Unknown]
  - Non-Hodgkin^s lymphoma [Unknown]
  - B-cell lymphoma [Unknown]
  - Tuberculosis [Unknown]
  - General physical health deterioration [Unknown]
  - Adenosine deaminase increased [Unknown]
